FAERS Safety Report 16745780 (Version 1)
Quarter: 2019Q3

REPORT INFORMATION
  Report Type: Spontaneous
  Country: US (occurrence: US)
  Receive Date: 20190827
  Receipt Date: 20190827
  Transmission Date: 20191005
  Serious: No
  Sender: FDA-Public Use
  Company Number: US-TEVA-2019-US-1098898

PATIENT
  Sex: Female

DRUGS (1)
  1. PRIMIDONE ACTAVIS [Suspect]
     Active Substance: PRIMIDONE
     Dosage: 250 MG
     Route: 065

REACTIONS (3)
  - Epigastric discomfort [Unknown]
  - Dyspepsia [Unknown]
  - Abdominal discomfort [Unknown]
